FAERS Safety Report 5312205-6 (Version None)
Quarter: 2007Q2

REPORT INFORMATION
  Report Type: 
  Country: None (occurrence: None)
  Receive Date: 20070430
  Receipt Date: 20060823
  Transmission Date: 20071010
  Serious: No
  Sender: FDA-Public Use
  Company Number: 2006UW16729

PATIENT
  Sex: Male
  Weight: 49.9 kg

DRUGS (4)
  1. NEXIUM [Suspect]
     Indication: GASTROOESOPHAGEAL REFLUX DISEASE
     Route: 048
  2. DOXAZOSIN MESYLATE [Concomitant]
  3. MAALOX FAST BLOCKER [Concomitant]
  4. MYLANTA [Concomitant]

REACTIONS (3)
  - OESOPHAGEAL PAIN [None]
  - ORAL DISCOMFORT [None]
  - THROAT IRRITATION [None]
